FAERS Safety Report 14583060 (Version 1)
Quarter: 2018Q1

REPORT INFORMATION
  Report Type: Spontaneous
  Country: PL (occurrence: PL)
  Receive Date: 20180228
  Receipt Date: 20180228
  Transmission Date: 20180509
  Serious: Yes (Other)
  Sender: FDA-Public Use
  Company Number: PL-SA-2018SA050313

PATIENT
  Age: 23 Year
  Sex: Male

DRUGS (3)
  1. INSULIN ASPART [Suspect]
     Active Substance: INSULIN ASPART
     Indication: TYPE 1 DIABETES MELLITUS
     Dosage: 2 U/CARBOHYDRATE EXCHANGE AT BREAKFAST, THEN 3 U/CARBOHYDRATE EXCHANGE, ALTOGETHER 40 U/DAY
     Route: 065
  2. INSULIN GLARGINE [Suspect]
     Active Substance: INSULIN GLARGINE
     Indication: TYPE 1 DIABETES MELLITUS
     Dosage: DOSE:20 UNIT(S)
     Route: 065
  3. LEVOTHYROXINE. [Concomitant]
     Active Substance: LEVOTHYROXINE
     Indication: HYPOTHYROIDISM

REACTIONS (5)
  - Blood insulin increased [Unknown]
  - Injection site hypertrophy [Unknown]
  - Blood glucose fluctuation [Unknown]
  - Diabetic metabolic decompensation [Unknown]
  - Product use issue [Unknown]
